FAERS Safety Report 22394433 (Version 1)
Quarter: 2023Q2

REPORT INFORMATION
  Report Type: Spontaneous
  Country: US (occurrence: None)
  Receive Date: 20230531
  Receipt Date: 20230531
  Transmission Date: 20230721
  Serious: No
  Sender: FDA-Public Use
  Company Number: None

PATIENT
  Age: 77 Year
  Sex: Female
  Weight: 89.36 kg

DRUGS (10)
  1. IBRANCE [Suspect]
     Active Substance: PALBOCICLIB
     Indication: Breast cancer female
     Dosage: FREQUENCY : DAILY;?
     Route: 048
     Dates: start: 20220103
  2. ADVIL [Concomitant]
     Active Substance: IBUPROFEN
  3. AMLODIPINE [Concomitant]
     Active Substance: AMLODIPINE BESYLATE
  4. CALCIUM [Concomitant]
     Active Substance: CALCIUM
  5. FEMARA [Concomitant]
     Active Substance: LETROZOLE
  6. HYDROCHLOROTHIAZIDE [Concomitant]
  7. METOPROLOL [Concomitant]
     Active Substance: METOPROLOL
  8. VITAMIN B12 [Concomitant]
     Active Substance: CYANOCOBALAMIN
  9. VENLAFAXINE [Concomitant]
     Active Substance: VENLAFAXINE HYDROCHLORIDE
  10. LETROZOLE [Concomitant]

REACTIONS (3)
  - Malaise [None]
  - Therapy interrupted [None]
  - Full blood count decreased [None]
